FAERS Safety Report 6415084-9 (Version None)
Quarter: 2009Q4

REPORT INFORMATION
  Report Type: 
  Country: None (occurrence: None)
  Receive Date: 20091022
  Receipt Date: 20091009
  Transmission Date: 20100525
  Serious: Yes (Hospitalization)
  Sender: FDA-Public Use
  Company Number: 007629

PATIENT
  Age: 77 Year
  Sex: Female
  Weight: 38.6 kg

DRUGS (8)
  1. PLETAL [Suspect]
     Indication: CEREBROVASCULAR SPASM
     Dosage: 100 MG, BID ORAL
     Route: 048
     Dates: start: 20090806, end: 20090911
  2. LIPITOR [Concomitant]
  3. SELBEX (TEPRENONE) [Concomitant]
  4. FAMOTIDINE [Concomitant]
  5. SYMMETREL [Concomitant]
  6. BIOFERMIN R (ANTIBIOTICS-RESISTANT LACTIC ACID BACTERIAE) [Concomitant]
  7. AMLODIN OD (AMLODIPINE BESILATE) [Concomitant]
  8. VANCOMYCIN [Concomitant]

REACTIONS (2)
  - ANTINUCLEAR ANTIBODY POSITIVE [None]
  - PULMONARY ALVEOLAR HAEMORRHAGE [None]
